FAERS Safety Report 8182934 (Version 3)
Quarter: 2012Q4

REPORT INFORMATION
  Report Type: Report from Study
  Country: FR (occurrence: FR)
  Receive Date: 20111017
  Receipt Date: 20121025
  Transmission Date: 20130627
  Serious: Yes (Disabling)
  Sender: FDA-Public Use
  Company Number: FR-ACTELION-A-CH2010-40570

PATIENT
  Age: 46 Year
  Sex: Male
  Weight: 93 kg

DRUGS (5)
  1. ZAVESCA [Suspect]
     Indication: GAUCHER^S DISEASE
     Dosage: 100 mg, od
     Route: 048
     Dates: start: 201005, end: 20100601
  2. ZAVESCA [Suspect]
     Dosage: 100 mg, tid
     Route: 048
     Dates: start: 20100602, end: 201010
  3. DEROXAT [Concomitant]
  4. KESTIN [Concomitant]
  5. RIVOTRIL [Concomitant]

REACTIONS (7)
  - Parkinsonism [Not Recovered/Not Resolved]
  - Depression [Not Recovered/Not Resolved]
  - Constipation [Not Recovered/Not Resolved]
  - Tremor [Not Recovered/Not Resolved]
  - Weight decreased [Unknown]
  - Mood altered [Not Recovered/Not Resolved]
  - Asthenia [Not Recovered/Not Resolved]
